FAERS Safety Report 5300211-7 (Version None)
Quarter: 2007Q2

REPORT INFORMATION
  Report Type: 
  Country: None (occurrence: None)
  Receive Date: 20070418
  Receipt Date: 20070416
  Transmission Date: 20071010
  Serious: Yes (Other)
  Sender: FDA-Public Use
  Company Number: US-JNJFOC-20070403171

PATIENT
  Sex: Female
  Weight: 63.5 kg

DRUGS (5)
  1. REMICADE [Suspect]
     Indication: CROHN'S DISEASE
     Route: 042
  2. VITAMIN B-12 [Concomitant]
  3. TOPROL-XL [Concomitant]
     Indication: CARDIAC DISORDER
  4. ELAVIL [Concomitant]
  5. DARVOCET [Concomitant]
     Indication: PAIN

REACTIONS (2)
  - CORONARY ARTERIAL STENT INSERTION [None]
  - FUNGAL SKIN INFECTION [None]
